FAERS Safety Report 4795352-7 (Version None)
Quarter: 2005Q4

REPORT INFORMATION
  Report Type: 
  Country: None (occurrence: None)
  Receive Date: 20051012
  Receipt Date: 20051004
  Transmission Date: 20060501
  Serious: Yes (Other)
  Sender: FDA-Public Use
  Company Number: US-JNJFOC-20051001231

PATIENT
  Sex: Female
  Weight: 94.35 kg

DRUGS (2)
  1. DURAGESIC-100 [Suspect]
     Route: 062
  2. FENTANYL [Suspect]
     Route: 062

REACTIONS (4)
  - DIABETES MELLITUS [None]
  - HOT FLUSH [None]
  - HYPERHIDROSIS [None]
  - SOMNOLENCE [None]
